FAERS Safety Report 5002219-8 (Version None)
Quarter: 2006Q2

REPORT INFORMATION
  Report Type: 
  Country: None (occurrence: None)
  Receive Date: 20060511
  Receipt Date: 20060511
  Transmission Date: 20061013
  Serious: Yes (Other)
  Sender: FDA-Public Use
  Company Number: None

PATIENT
  Age: 26 Year
  Sex: Female
  Weight: 86.1834 kg

DRUGS (1)
  1. LYRICA [Suspect]
     Indication: NEURALGIA
     Dosage: 300 MG DAILY PO
     Route: 048

REACTIONS (5)
  - DEPRESSION [None]
  - DIZZINESS [None]
  - MIGRAINE [None]
  - NAUSEA [None]
  - VOMITING [None]
